FAERS Safety Report 4308365-6 (Version None)
Quarter: 2004Q1

REPORT INFORMATION
  Report Type: 
  Country: None (occurrence: None)
  Receive Date: 20040301
  Receipt Date: 20040218
  Transmission Date: 20041129
  Serious: Yes (Hospitalization, Other)
  Sender: FDA-Public Use
  Company Number: GB-BRISTOL-MYERS SQUIBB COMPANY-12509584

PATIENT
  Age: 56 Year
  Sex: Female

DRUGS (3)
  1. CARBOPLATIN [Suspect]
     Indication: OVARIAN CANCER
     Dosage: THERAPY DATES: 25-SEP-2002 TO 07-NOV-2002; DURATION OF THERAPY 44 DAY
     Route: 042
     Dates: start: 20020925, end: 20020925
  2. PACLITAXEL [Suspect]
     Indication: OVARIAN CANCER
     Dosage: THERAPY DATES: 25-SEP-2002 TO 07-NOV-2002; DURATION OF THERAPY 44 DAY
     Route: 042
     Dates: start: 20020925, end: 20020925
  3. INTERFERON GAMMA [Suspect]
     Indication: OVARIAN CANCER
     Dosage: THERAPY DATES: 25-SEP-2002 TO UNKNOWN
     Route: 058
     Dates: start: 20020925, end: 20020925

REACTIONS (2)
  - NEUTROPENIC SEPSIS [None]
  - URINARY TRACT INFECTION [None]
